FAERS Safety Report 4620771-9 (Version None)
Quarter: 2005Q1

REPORT INFORMATION
  Report Type: 
  Country: None (occurrence: None)
  Receive Date: 20050328
  Receipt Date: 20050314
  Transmission Date: 20050727
  Serious: Yes (Hospitalization)
  Sender: FDA-Public Use
  Company Number: DE-AMGEN-UK120471

PATIENT
  Sex: Female

DRUGS (6)
  1. NEUPOGEN [Suspect]
     Indication: CHEMOTHERAPY
     Route: 065
  2. EPIRUBICIN [Suspect]
     Route: 065
  3. CYCLOPHOSPHAMIDE [Suspect]
     Route: 065
  4. ZOLEDRONATE [Suspect]
     Route: 041
  5. FOLIC ACID [Concomitant]
     Route: 065
  6. FLUOROURACIL [Concomitant]
     Route: 065

REACTIONS (9)
  - ANAEMIA [None]
  - BONE MARROW DISORDER [None]
  - BREAST CANCER METASTATIC [None]
  - DISEASE PROGRESSION [None]
  - GENERAL PHYSICAL HEALTH DETERIORATION [None]
  - LEUKOPENIA [None]
  - METASTASES TO LIVER [None]
  - NEUROLOGICAL SYMPTOM [None]
  - THROMBOCYTOPENIA [None]
